FAERS Safety Report 15337290 (Version 2)
Quarter: 2018Q3

REPORT INFORMATION
  Report Type: Report from Study
  Country: CO (occurrence: CO)
  Receive Date: 20180831
  Receipt Date: 20180907
  Transmission Date: 20181010
  Serious: Yes (Other)
  Sender: FDA-Public Use
  Company Number: CO-ACTELION-A-CH2018-177864

PATIENT
  Age: 46 Year
  Sex: Female
  Weight: 79 kg

DRUGS (5)
  1. ILOPROST. [Concomitant]
     Active Substance: ILOPROST
     Indication: PULMONARY ARTERIAL HYPERTENSION
     Dosage: UNK
     Route: 048
  2. BOSENTAN. [Suspect]
     Active Substance: BOSENTAN
     Indication: PULMONARY ARTERIAL HYPERTENSION
     Dosage: 125 MG, BID
     Route: 048
  3. BOSENTAN. [Suspect]
     Active Substance: BOSENTAN
     Dosage: 125 MG, BID
     Route: 048
     Dates: start: 20140930, end: 201501
  4. BOSENTAN. [Suspect]
     Active Substance: BOSENTAN
     Dosage: 62.5 MG, QD
     Route: 048
     Dates: start: 20140626, end: 201409
  5. RIOCIGUAT. [Concomitant]
     Active Substance: RIOCIGUAT
     Indication: PULMONARY ARTERIAL HYPERTENSION
     Dosage: UNK
     Route: 048

REACTIONS (8)
  - Chest pain [Not Recovered/Not Resolved]
  - Soft tissue disorder [Not Recovered/Not Resolved]
  - Road traffic accident [Not Recovered/Not Resolved]
  - Choking [Not Recovered/Not Resolved]
  - Headache [Unknown]
  - Drug administration error [Not Recovered/Not Resolved]
  - Nausea [Unknown]
  - Back pain [Not Recovered/Not Resolved]

NARRATIVE: CASE EVENT DATE: 2015
